FAERS Safety Report 13266234 (Version 1)
Quarter: 2017Q1

REPORT INFORMATION
  Report Type: Spontaneous
  Country: US (occurrence: US)
  Receive Date: 20170223
  Receipt Date: 20170223
  Transmission Date: 20170428
  Serious: No
  Sender: FDA-Public Use
  Company Number: US-PRAGMA PHARMACEUTICALS, LLC-2016PRG00016

PATIENT
  Age: 80 Year
  Sex: Female
  Weight: 46.26 kg

DRUGS (2)
  1. CARBIDOPA-LEVODOPA [Concomitant]
     Active Substance: CARBIDOPA\LEVODOPA
     Dosage: 1 TABLETS, 3X/DAY
     Route: 048
     Dates: start: 2013, end: 201607
  2. KEFLEX [Suspect]
     Active Substance: CEPHALEXIN
     Dosage: 250 MG, 2X/DAY
     Route: 048
     Dates: start: 201606

REACTIONS (1)
  - Contusion [Unknown]

NARRATIVE: CASE EVENT DATE: 201606
